FAERS Safety Report 13889007 (Version 2)
Quarter: 2017Q3

REPORT INFORMATION
  Report Type: Spontaneous
  Country: US (occurrence: US)
  Receive Date: 20170821
  Receipt Date: 20170907
  Transmission Date: 20171127
  Serious: Yes (Other)
  Sender: FDA-Public Use
  Company Number: US-BEH-2017082898

PATIENT
  Age: 86 Year
  Sex: Female
  Weight: 63.39 kg

DRUGS (1)
  1. HIZENTRA [Suspect]
     Active Substance: HUMAN IMMUNOGLOBULIN G
     Indication: IMMUNODEFICIENCY
     Dosage: 7 G, WEEKLY
     Route: 058
     Dates: start: 20121226

REACTIONS (6)
  - Hemiparesis [Recovering/Resolving]
  - Embolic stroke [Recovering/Resolving]
  - Head injury [Recovering/Resolving]
  - Atrial fibrillation [Recovering/Resolving]
  - Hypoaesthesia [Recovering/Resolving]
  - Fall [Recovering/Resolving]

NARRATIVE: CASE EVENT DATE: 201706
